FAERS Safety Report 7988836-1 (Version None)
Quarter: 2011Q4

REPORT INFORMATION
  Report Type: 
  Country: None (occurrence: None)
  Receive Date: 20111219
  Receipt Date: 20111213
  Transmission Date: 20120403
  Serious: Yes (Hospitalization)
  Sender: FDA-Public Use
  Company Number: FR-SHIRE-SPV1-2011-01500

PATIENT
  Sex: Male

DRUGS (1)
  1. ANAGRELIDE HYDROCHLORIDE [Suspect]
     Indication: ESSENTIAL THROMBOCYTHAEMIA
     Dosage: 2.5 OR 3 MG, 1X/DAY:QD

REACTIONS (1)
  - ARTERITIS CORONARY [None]
